FAERS Safety Report 7928030-3 (Version None)
Quarter: 2011Q4

REPORT INFORMATION
  Report Type: 
  Country: None (occurrence: None)
  Receive Date: 20111118
  Receipt Date: 20111109
  Transmission Date: 20120403
  Serious: Yes (Hospitalization, Other)
  Sender: FDA-Public Use
  Company Number: US-BAYER-2011-013557

PATIENT
  Sex: Female

DRUGS (7)
  1. YASMIN [Suspect]
     Indication: ACNE
  2. XOPENEX [Concomitant]
  3. YAZ [Suspect]
     Indication: CONTRACEPTION
     Dosage: UNK
     Dates: start: 20081001, end: 20081101
  4. YASMIN [Suspect]
     Indication: CONTRACEPTION
     Dosage: UNK
     Dates: start: 20081001, end: 20081101
  5. YAZ [Suspect]
     Indication: ACNE
  6. ZYRTEC [Concomitant]
  7. RHINOCORT [Concomitant]

REACTIONS (8)
  - GALLBLADDER DISORDER [None]
  - INJURY [None]
  - PAIN [None]
  - ANXIETY [None]
  - EMOTIONAL DISTRESS [None]
  - DEHYDRATION [None]
  - DIARRHOEA [None]
  - HAEMORRHAGE [None]
